FAERS Safety Report 7292634-4 (Version None)
Quarter: 2011Q1

REPORT INFORMATION
  Report Type: 
  Country: None (occurrence: None)
  Receive Date: 20110215
  Receipt Date: 20110208
  Transmission Date: 20110831
  Serious: Yes (Death, Other)
  Sender: FDA-Public Use
  Company Number: IT-SANOFI-AVENTIS-2011SA007795

PATIENT
  Sex: Female

DRUGS (2)
  1. ASPIRIN [Suspect]
     Route: 048
  2. CLEXANE [Suspect]
     Route: 058

REACTIONS (5)
  - VENOUS INSUFFICIENCY [None]
  - RECTAL HAEMORRHAGE [None]
  - OEDEMA PERIPHERAL [None]
  - FLUID RETENTION [None]
  - HAEMORRHAGE [None]
